FAERS Safety Report 6888828-X (Version None)
Quarter: 2010Q3

REPORT INFORMATION
  Report Type: 
  Country: None (occurrence: None)
  Receive Date: 20100730
  Receipt Date: 20100721
  Transmission Date: 20110219
  Serious: Yes (Hospitalization)
  Sender: FDA-Public Use
  Company Number: DE-ABBOTT-10P-062-0659392-00

PATIENT
  Age: 76 Year
  Sex: Male

DRUGS (11)
  1. KLACID [Suspect]
     Indication: PRODUCT USED FOR UNKNOWN INDICATION
     Route: 048
     Dates: start: 20100118, end: 20100121
  2. LEPONEX [Suspect]
     Indication: PRODUCT USED FOR UNKNOWN INDICATION
     Route: 048
     Dates: start: 20100118, end: 20100119
  3. LEPONEX [Suspect]
     Route: 048
     Dates: start: 20100120, end: 20100121
  4. LEPONEX [Suspect]
     Dates: start: 20100121, end: 20100121
  5. LEPONEX [Suspect]
     Dates: start: 20100122, end: 20100122
  6. DELIX [Concomitant]
     Indication: PRODUCT USED FOR UNKNOWN INDICATION
     Route: 048
  7. DELIX 2.5PLUS/-5 PLUS [Concomitant]
     Indication: PRODUCT USED FOR UNKNOWN INDICATION
     Route: 048
  8. PHENYTOIN [Concomitant]
     Indication: PRODUCT USED FOR UNKNOWN INDICATION
     Route: 048
     Dates: start: 20091222, end: 20100201
  9. LEVODOPA [Concomitant]
     Indication: PRODUCT USED FOR UNKNOWN INDICATION
     Route: 048
     Dates: start: 20091222
  10. AUGMENTAN [Concomitant]
     Indication: PRODUCT USED FOR UNKNOWN INDICATION
     Dates: start: 20100118, end: 20100121
  11. LANTUS [Concomitant]
     Indication: PRODUCT USED FOR UNKNOWN INDICATION
     Route: 058

REACTIONS (3)
  - AGGRESSION [None]
  - GRAND MAL CONVULSION [None]
  - RESTLESSNESS [None]
